FAERS Safety Report 6554955-X (Version None)
Quarter: 2010Q1

REPORT INFORMATION
  Report Type: 
  Country: None (occurrence: None)
  Receive Date: 20100126
  Receipt Date: 20100126
  Transmission Date: 20100710
  Serious: No
  Sender: FDA-Public Use
  Company Number: None

PATIENT
  Age: 45 Year
  Sex: Female
  Weight: 104.3273 kg

DRUGS (1)
  1. ZYRTEC [Suspect]
     Dosage: DAILY

REACTIONS (7)
  - ATRIAL FIBRILLATION [None]
  - ATRIAL FLUTTER [None]
  - CONTUSION [None]
  - DRUG WITHDRAWAL SYNDROME [None]
  - PRURITUS [None]
  - SCRATCH [None]
  - SKIN LACERATION [None]
